FAERS Safety Report 9980502 (Version 1)
Quarter: 2014Q1

REPORT INFORMATION
  Report Type: Spontaneous
  Country: US (occurrence: US)
  Receive Date: 20140307
  Receipt Date: 20140307
  Transmission Date: 20141002
  Serious: No
  Sender: FDA-Public Use
  Company Number: US-BIOGENIDEC-2014BI019312

PATIENT
  Age: 50 Year
  Sex: Female

DRUGS (2)
  1. TYSABRI [Suspect]
     Indication: MULTIPLE SCLEROSIS
     Route: 042
     Dates: start: 20090512, end: 20090804
  2. TYSABRI [Suspect]
     Indication: MULTIPLE SCLEROSIS
     Route: 042
     Dates: start: 20110125

REACTIONS (4)
  - Raynaud^s phenomenon [Not Recovered/Not Resolved]
  - Poor peripheral circulation [Not Recovered/Not Resolved]
  - Pallor [Not Recovered/Not Resolved]
  - Skin discolouration [Not Recovered/Not Resolved]
